FAERS Safety Report 22146802 (Version 1)
Quarter: 2023Q1

REPORT INFORMATION
  Report Type: Spontaneous
  Country: US (occurrence: None)
  Receive Date: 20230327
  Receipt Date: 20230327
  Transmission Date: 20230418
  Serious: No
  Sender: FDA-Public Use
  Company Number: None

PATIENT
  Age: 74 Year
  Sex: Female

DRUGS (2)
  1. TECARTUS [Suspect]
     Active Substance: BREXUCABTAGENE AUTOLEUCEL
  2. N/A [Suspect]
     Active Substance: UNSPECIFIED INGREDIENT

REACTIONS (3)
  - Pyrexia [None]
  - Hypotension [None]
  - Complement factor [None]

NARRATIVE: CASE EVENT DATE: 20221213
